FAERS Safety Report 15388164 (Version 2)
Quarter: 2025Q3

REPORT INFORMATION
  Report Type: Spontaneous
  Country: EU (occurrence: EU)
  Receive Date: 20180915
  Receipt Date: 20250716
  Transmission Date: 20251020
  Serious: Yes (Hospitalization, Other)
  Sender: AUROBINDO
  Company Number: EU-AUROBINDO-AUR-APL-2018-045649

PATIENT
  Age: 43 Year
  Sex: Female
  Weight: 40.5 kg

DRUGS (4)
  1. TENOFOVIR DISOPROXIL [Suspect]
     Active Substance: TENOFOVIR DISOPROXIL
     Indication: HIV infection
     Route: 065
  2. RITONAVIR [Concomitant]
     Active Substance: RITONAVIR
     Indication: HIV infection
     Route: 065
  3. DARUNAVIR [Concomitant]
     Active Substance: DARUNAVIR
     Indication: HIV infection
     Route: 065
  4. EMTRIVA [Concomitant]
     Active Substance: EMTRICITABINE
     Indication: HIV infection
     Route: 065

REACTIONS (13)
  - Blood uric acid decreased [Recovered/Resolved]
  - Urine calcium increased [Recovered/Resolved]
  - Blood creatine increased [Recovered/Resolved]
  - Aminoaciduria [Recovered/Resolved]
  - Weight decreased [Recovered/Resolved]
  - Hypophosphataemia [Recovered/Resolved]
  - Glomerular filtration rate decreased [Recovered/Resolved]
  - Proteinuria [Recovered/Resolved]
  - Fanconi syndrome acquired [Recovered/Resolved]
  - Glycosuria [Recovered/Resolved]
  - Deoxypyridinoline urine increased [Recovered/Resolved]
  - Acidosis hyperchloraemic [Recovered/Resolved]
  - Urine uric acid increased [Recovered/Resolved]
